FAERS Safety Report 4818849-X (Version None)
Quarter: 2005Q4

REPORT INFORMATION
  Report Type: 
  Country: None (occurrence: None)
  Receive Date: 20051101
  Receipt Date: 20051018
  Transmission Date: 20060501
  Serious: Yes (Hospitalization)
  Sender: FDA-Public Use
  Company Number: MEDI-0003735

PATIENT
  Age: 62 Year
  Sex: Male
  Weight: 207.6 kg

DRUGS (9)
  1. ETHYOL [Suspect]
     Indication: CHEMOTHERAPY
     Dosage: 500 MG, 5 IN 1 WK, SUBCUTANEOUS
     Route: 058
     Dates: start: 20050920, end: 20051007
  2. ETHYOL [Suspect]
     Indication: RADIOTHERAPY
     Dosage: 500 MG, 5 IN 1 WK, SUBCUTANEOUS
     Route: 058
     Dates: start: 20050920, end: 20051007
  3. RADIATION THERAPY [Concomitant]
  4. FLUOROURACIL [Concomitant]
  5. CARBOPLATIN [Concomitant]
  6. DILANTIN [Concomitant]
  7. MORPHINE [Concomitant]
  8. MULTIVITAMINS 9ERGOCALCIFEROL, ASCORBIC ACID, FOLIC ACID, THIAMINE HYD [Concomitant]
  9. ZOFRAN [Concomitant]

REACTIONS (7)
  - CHILLS [None]
  - DEHYDRATION [None]
  - INJECTION SITE REACTION [None]
  - MUCOSAL INFLAMMATION [None]
  - NEUTROPENIA [None]
  - PYREXIA [None]
  - RASH MACULO-PAPULAR [None]
